APPROVED DRUG PRODUCT: XOLREMDI
Active Ingredient: MAVORIXAFOR
Strength: 100MG
Dosage Form/Route: CAPSULE;ORAL
Application: N218709 | Product #001
Applicant: X4 PHARMACEUTICALS INC
Approved: Apr 26, 2024 | RLD: Yes | RS: Yes | Type: RX

PATENTS:
Patent 11219621 | Expires: Dec 22, 2036
Patent 10610527 | Expires: Dec 22, 2036
Patent 11045461 | Expires: Dec 11, 2038
Patent 10953003 | Expires: Dec 14, 2036
Patent 12115156 | Expires: Dec 11, 2038
Patent 10548889 | Expires: Dec 11, 2038

EXCLUSIVITY:
Code: NCE | Date: Apr 26, 2029
Code: ODE-480 | Date: Apr 26, 2031